FAERS Safety Report 7982617-0 (Version None)
Quarter: 2011Q4

REPORT INFORMATION
  Report Type: 
  Country: None (occurrence: None)
  Receive Date: 20111215
  Receipt Date: 20111125
  Transmission Date: 20120403
  Serious: Yes (Hospitalization)
  Sender: FDA-Public Use
  Company Number: JP-GLAXOSMITHKLINE-B0765573A

PATIENT
  Sex: Female

DRUGS (2)
  1. DEPAKENE [Concomitant]
     Indication: BIPOLAR DISORDER
     Dosage: 600MG PER DAY
     Route: 048
     Dates: start: 20101220
  2. LAMICTAL [Suspect]
     Indication: PROPHYLAXIS
     Dosage: 25MG ALTERNATE DAYS
     Route: 048
     Dates: start: 20110905, end: 20111028

REACTIONS (7)
  - DRUG ERUPTION [None]
  - ERYTHEMA [None]
  - RASH [None]
  - URTICARIA [None]
  - MENTAL DISORDER [None]
  - STOMATITIS [None]
  - LIP SWELLING [None]
